FAERS Safety Report 9780282 (Version 2)
Quarter: 2014Q1

REPORT INFORMATION
  Report Type: Spontaneous
  Country: JP (occurrence: JP)
  Receive Date: 20131223
  Receipt Date: 20140110
  Transmission Date: 20141002
  Serious: Yes (Death)
  Sender: FDA-Public Use
  Company Number: JP-CELGENEUS-087-21660-13124041

PATIENT
  Age: 78 Year
  Sex: Male
  Weight: 58 kg

DRUGS (11)
  1. ABRAXANE [Suspect]
     Indication: SQUAMOUS CELL CARCINOMA OF LUNG
     Dosage: 100 MILLIGRAM
     Route: 041
     Dates: start: 20131009, end: 20131009
  2. CARBOPLATIN [Suspect]
     Indication: SQUAMOUS CELL CARCINOMA OF LUNG
     Dosage: 450 MILLIGRAM
     Route: 041
     Dates: start: 20131009, end: 20131009
  3. DECADRON [Concomitant]
     Indication: PROPHYLAXIS
     Dosage: 9.9 MILLIGRAM
     Route: 041
     Dates: start: 20131009, end: 20131009
  4. DECADRON [Concomitant]
     Dosage: 8 MILLIGRAM
     Route: 048
     Dates: start: 20131010, end: 20131012
  5. ALOXI [Concomitant]
     Indication: PROPHYLAXIS
     Dosage: .75 MILLIGRAM
     Route: 041
     Dates: start: 20131009, end: 20131009
  6. MAGLAX [Concomitant]
     Indication: CONSTIPATION
     Dosage: 1980 MILLIGRAM
     Route: 048
     Dates: start: 20131013, end: 20131014
  7. PURSENNID [Concomitant]
     Indication: CONSTIPATION
     Dosage: 24 MILLIGRAM
     Route: 048
     Dates: start: 20131012, end: 20131012
  8. SOLYUGEN F [Concomitant]
     Indication: PRODUCT USED FOR UNKNOWN INDICATION
     Route: 065
     Dates: start: 20131014
  9. ADRENALINE [Concomitant]
     Indication: PRODUCT USED FOR UNKNOWN INDICATION
     Dosage: 1 AMPULE
     Route: 041
     Dates: start: 20131014
  10. ADONA [Concomitant]
     Indication: PRODUCT USED FOR UNKNOWN INDICATION
     Route: 065
     Dates: start: 20131014
  11. TRANSAMIN [Concomitant]
     Indication: PRODUCT USED FOR UNKNOWN INDICATION
     Dosage: 1 AMPULE
     Route: 065
     Dates: start: 20131014

REACTIONS (3)
  - Shock haemorrhagic [Fatal]
  - Vascular injury [Fatal]
  - Haemoptysis [Fatal]
